FAERS Safety Report 4513633-9 (Version None)
Quarter: 2004Q4

REPORT INFORMATION
  Report Type: 
  Country: None (occurrence: None)
  Receive Date: 20041130
  Receipt Date: 20040817
  Transmission Date: 20050328
  Serious: Yes (Hospitalization)
  Sender: FDA-Public Use
  Company Number: US-GLAXOSMITHKLINE-A0522448A

PATIENT
  Age: 57 Year
  Sex: Female

DRUGS (3)
  1. WELLBUTRIN [Suspect]
     Indication: DEPRESSION
     Dosage: 300MG PER DAY
     Route: 048
     Dates: start: 20040201, end: 20040802
  2. HYDROCHLOROTHIAZIDE [Concomitant]
  3. GLUCOPHAGE [Concomitant]

REACTIONS (3)
  - GRAND MAL CONVULSION [None]
  - URINARY INCONTINENCE [None]
  - VOMITING [None]
